FAERS Safety Report 8178618-2 (Version None)
Quarter: 2012Q1

REPORT INFORMATION
  Report Type: 
  Country: None (occurrence: None)
  Receive Date: 20120301
  Receipt Date: 20120220
  Transmission Date: 20120608
  Serious: Yes (Hospitalization, Other)
  Sender: FDA-Public Use
  Company Number: US-RB-036110-12

PATIENT
  Sex: Female
  Weight: 6 kg

DRUGS (6)
  1. SUBOXONE [Suspect]
     Indication: DRUG DEPENDENCE
     Dosage: VARIOUS DOSES
     Route: 064
     Dates: start: 20110501, end: 20110923
  2. BUPRENORPHINE [Suspect]
     Indication: DRUG DEPENDENCE
     Dosage: VARIOUS DOSES
     Route: 064
     Dates: start: 20110501, end: 20110923
  3. SUBUTEX [Suspect]
     Indication: DRUG DEPENDENCE
     Dosage: VARIOUS DOSES
     Route: 064
     Dates: start: 20110501, end: 20110923
  4. SUBOXONE [Suspect]
     Dosage: VARIOUS DOSES
     Route: 064
     Dates: start: 20110501, end: 20110923
  5. OTHER OPIATES [Suspect]
     Indication: DRUG DEPENDENCE
     Dosage: UNKNOWN DOSING REGIMEN
     Route: 064
     Dates: start: 20110501, end: 20110923
  6. SUBOXONE [Suspect]
     Indication: DRUG DEPENDENCE
     Dosage: 4 MG DAILY
     Route: 064
     Dates: start: 20110101, end: 20110501

REACTIONS (6)
  - FOETAL EXPOSURE DURING PREGNANCY [None]
  - PREMATURE BABY [None]
  - RESPIRATORY DISORDER NEONATAL [None]
  - DEVELOPMENTAL DELAY [None]
  - TREMOR NEONATAL [None]
  - GASTROOESOPHAGEAL REFLUX DISEASE [None]
